FAERS Safety Report 7416289-0 (Version None)
Quarter: 2011Q2

REPORT INFORMATION
  Report Type: 
  Country: None (occurrence: None)
  Receive Date: 20110414
  Receipt Date: 20110407
  Transmission Date: 20111010
  Serious: Yes (Other)
  Sender: FDA-Public Use
  Company Number: US-ELI_LILLY_AND_COMPANY-US201104002830

PATIENT
  Age: 65 Year
  Sex: Male

DRUGS (2)
  1. CIALIS [Suspect]
     Indication: ERECTILE DYSFUNCTION
     Dosage: 1 DF, PRN
  2. DEPO-TESTOSTERONE [Concomitant]
     Dosage: 1 UNK, UNK

REACTIONS (2)
  - TESTIS CANCER [None]
  - DRUG INEFFECTIVE [None]
